FAERS Safety Report 9538078 (Version 1)
Quarter: 2013Q3

REPORT INFORMATION
  Report Type: Report from Study
  Country: BR (occurrence: BR)
  Receive Date: 20130920
  Receipt Date: 20130920
  Transmission Date: 20140515
  Serious: Yes (Other)
  Sender: FDA-Public Use
  Company Number: BR-ROCHE-1277380

PATIENT
  Sex: Male
  Weight: 87 kg

DRUGS (3)
  1. PEGASYS [Suspect]
     Indication: HEPATITIS C
     Route: 065
     Dates: start: 2011, end: 2012
  2. RIBAVIRIN [Suspect]
     Indication: HEPATITIS C
     Route: 065
     Dates: start: 2011, end: 2012
  3. TYLENOL [Concomitant]

REACTIONS (3)
  - Hepatitis C [Unknown]
  - Rash [Recovered/Resolved]
  - Headache [Recovered/Resolved]
